FAERS Safety Report 22628761 (Version 1)
Quarter: 2023Q2

REPORT INFORMATION
  Report Type: Spontaneous
  Country: PL (occurrence: PL)
  Receive Date: 20230622
  Receipt Date: 20230622
  Transmission Date: 20230721
  Serious: No
  Sender: FDA-Public Use
  Company Number: None

PATIENT
  Age: 68 Year
  Sex: Female

DRUGS (5)
  1. GENTAMICIN [Suspect]
     Active Substance: GENTAMICIN
     Indication: Eye pain
     Route: 065
  2. GENTAMICIN [Suspect]
     Active Substance: GENTAMICIN
     Indication: Eye irritation
  3. OZURDEX [Suspect]
     Active Substance: DEXAMETHASONE
     Indication: Eye pain
     Route: 031
  4. OZURDEX [Suspect]
     Active Substance: DEXAMETHASONE
     Indication: Eye irritation
  5. BROMFENAC [Suspect]
     Active Substance: BROMFENAC SODIUM
     Indication: Eye pain
     Dosage: DOSE DESC: EYE DROPS
     Route: 047

REACTIONS (1)
  - Drug ineffective [Unknown]
